FAERS Safety Report 19804947 (Version 1)
Quarter: 2021Q3

REPORT INFORMATION
  Report Type: Spontaneous
  Country: US (occurrence: US)
  Receive Date: 20210908
  Receipt Date: 20210908
  Transmission Date: 20211014
  Serious: No
  Sender: FDA-Public Use
  Company Number: US-REGENERON PHARMACEUTICALS, INC.-2020-75909

PATIENT

DRUGS (1)
  1. PRALUENT [Suspect]
     Active Substance: ALIROCUMAB
     Indication: HYPERCHOLESTEROLAEMIA
     Dosage: 75 MG / ML, QOW
     Route: 065
     Dates: start: 20200819

REACTIONS (3)
  - Tremor [Unknown]
  - Feeling abnormal [Unknown]
  - Coronary angioplasty [Unknown]

NARRATIVE: CASE EVENT DATE: 20200819
